FAERS Safety Report 8084022-8 (Version None)
Quarter: 2012Q1

REPORT INFORMATION
  Report Type: 
  Country: None (occurrence: None)
  Receive Date: 20120128
  Receipt Date: 20110128
  Transmission Date: 20120608
  Serious: No
  Sender: FDA-Public Use
  Company Number: US-ABBOTT-11P-163-0701242-00

PATIENT
  Age: 51 Year
  Sex: Female

DRUGS (4)
  1. SIMVASTATIN [Concomitant]
     Indication: HYPERTENSION
     Dosage: ONE TAB DAILY
  2. HYDROCHLOROTHIAZIDE [Concomitant]
     Indication: BLOOD CHOLESTEROL INCREASED
     Dosage: DAILY
  3. HUMIRA [Suspect]
     Indication: PSORIASIS
     Dates: start: 20110117
  4. UNKNOWN MEDICATION [Concomitant]
     Indication: PRURITUS

REACTIONS (1)
  - INJECTION SITE PAIN [None]
